FAERS Safety Report 5484459-7 (Version None)
Quarter: 2007Q4

REPORT INFORMATION
  Report Type: 
  Country: None (occurrence: None)
  Receive Date: 20071009
  Receipt Date: 20071001
  Transmission Date: 20080405
  Serious: Yes (Other)
  Sender: FDA-Public Use
  Company Number: 2007332276

PATIENT
  Age: 22 Year
  Sex: Male

DRUGS (2)
  1. MINOXIDIL [Suspect]
     Dosage: UNSPECIFIED, TOPICAL
     Route: 061
  2. FINASTERIDE [Concomitant]

REACTIONS (1)
  - CEREBROVASCULAR ACCIDENT [None]
